FAERS Safety Report 11429961 (Version 1)
Quarter: 2015Q3

REPORT INFORMATION
  Report Type: Spontaneous
  Country: US (occurrence: US)
  Receive Date: 20150828
  Receipt Date: 20150828
  Transmission Date: 20151125
  Serious: No
  Sender: FDA-Public Use
  Company Number: PHEH2015US010936

PATIENT
  Age: 72 Year
  Sex: Female

DRUGS (3)
  1. MULTIVIT//VITAMINS NOS [Concomitant]
     Active Substance: VITAMINS
  2. CALCIUM [Concomitant]
     Active Substance: CALCIUM
  3. RECLAST [Suspect]
     Active Substance: ZOLEDRONIC ACID
     Indication: OSTEITIS DEFORMANS
     Dosage: UNK
     Route: 041
     Dates: start: 20150604

REACTIONS (5)
  - Pyrexia [Unknown]
  - Myalgia [Unknown]
  - Chills [Unknown]
  - Influenza like illness [Unknown]
  - Nausea [Unknown]

NARRATIVE: CASE EVENT DATE: 20150605
